FAERS Safety Report 7529521-X (Version None)
Quarter: 2011Q2

REPORT INFORMATION
  Report Type: 
  Country: None (occurrence: None)
  Receive Date: 20110607
  Receipt Date: 20110606
  Transmission Date: 20111010
  Serious: Yes (Death, Other)
  Sender: FDA-Public Use
  Company Number: JP-PFIZER INC-2011082851

PATIENT
  Age: 85 Year
  Sex: Female
  Weight: 42 kg

DRUGS (10)
  1. PACLITAXEL [Concomitant]
     Dosage: 65.6 MG, 1X/DAY
     Route: 041
     Dates: start: 20110415, end: 20110415
  2. PACLITAXEL [Concomitant]
     Dosage: 65.6 MG, 1X/DAY
     Route: 041
     Dates: start: 20110408, end: 20110408
  3. LYRICA [Suspect]
     Indication: CANCER PAIN
     Dosage: 25 MG, 3X/DAY
     Route: 048
     Dates: start: 20110405, end: 20110411
  4. RHYTHMY [Concomitant]
     Indication: INSOMNIA
     Dosage: 1 MG, 1X/DAY
     Route: 048
     Dates: start: 20110312, end: 20110515
  5. PACLITAXEL [Concomitant]
     Indication: CHEMOTHERAPY
     Dosage: 65.6 MG, 1X/DAY
     Route: 041
     Dates: start: 20110401, end: 20110401
  6. PARAPLATIN [Concomitant]
     Indication: CHEMOTHERAPY
     Dosage: 445 MG, 1X/DAY
     Route: 041
     Dates: start: 20110401, end: 20110401
  7. LYRICA [Suspect]
     Indication: HYPOAESTHESIA
     Dosage: 75 MG, 2X/DAY
     Route: 048
     Dates: start: 20110412, end: 20110412
  8. CODEINE PHOSPHATE [Concomitant]
     Indication: COUGH
     Dosage: 20 MG, 3X/DAY
     Route: 048
     Dates: start: 20100101, end: 20110515
  9. DECADRON [Concomitant]
     Indication: PROPHYLAXIS OF NAUSEA AND VOMITING
     Dosage: 2 MG, 2X/DAY
     Route: 048
     Dates: start: 20110318, end: 20110422
  10. DIPHENHYDRAMINE HCL [Concomitant]
     Indication: CHEMOTHERAPY
     Dosage: 50 MG, 1X/DAY
     Route: 048
     Dates: start: 20110317, end: 20110422

REACTIONS (5)
  - DRUG EFFECT DECREASED [None]
  - CERVIX CARCINOMA [None]
  - DISEASE PROGRESSION [None]
  - DIZZINESS [None]
  - BLOOD PRESSURE DECREASED [None]
